FAERS Safety Report 4456091-5 (Version None)
Quarter: 2004Q3

REPORT INFORMATION
  Report Type: 
  Country: None (occurrence: None)
  Receive Date: 20040922
  Receipt Date: 20040712
  Transmission Date: 20050211
  Serious: Yes (Other)
  Sender: FDA-Public Use
  Company Number: PHBS2004JP09419

PATIENT
  Age: 8 Year
  Sex: Male
  Weight: 22 kg

DRUGS (8)
  1. TEGRETOL [Suspect]
     Indication: EPILEPSY
     Dosage: 85 MG, BID
     Route: 048
  2. FERROMIA [Concomitant]
     Dosage: 100 MG/DAY
     Route: 048
  3. RIBALL [Concomitant]
     Dosage: 130 MG/DAY
     Route: 048
  4. TANKARU [Concomitant]
     Dosage: 2 G/DAY
     Route: 048
  5. ASPARA K [Concomitant]
     Dosage: 400 MG/DAY
     Route: 048
  6. LAXOBERON [Concomitant]
     Route: 048
  7. ALFAROL [Concomitant]
     Dosage: 2 MG/DAY
     Route: 048
  8. GENOTROPIN [Concomitant]
     Dosage: 1.2 MG/DAY
     Route: 058

REACTIONS (2)
  - GYNAECOMASTIA [None]
  - HYPERPROLACTINAEMIA [None]
